FAERS Safety Report 14136517 (Version 2)
Quarter: 2017Q4

REPORT INFORMATION
  Report Type: Report from Study
  Country: CA (occurrence: CA)
  Receive Date: 20171027
  Receipt Date: 20171128
  Transmission Date: 20180321
  Serious: Yes (Other)
  Sender: FDA-Public Use
  Company Number: CA-REGENERON PHARMACEUTICALS, INC.-2017-24935

PATIENT

DRUGS (2)
  1. EYLEA [Suspect]
     Active Substance: AFLIBERCEPT
     Dosage: LAST DOSE PRIOR THE EVENT (OS)
     Dates: start: 20171013, end: 20171013
  2. EYLEA [Suspect]
     Active Substance: AFLIBERCEPT
     Indication: DIABETIC RETINAL OEDEMA
     Dosage: BILATERAL INJECTIONS. TOTAL DOSES PRIOR THE EVENT WERE NOT PROVIDED
     Dates: start: 20170818

REACTIONS (4)
  - Drug ineffective [Unknown]
  - Vision blurred [Not Recovered/Not Resolved]
  - Injection site haemorrhage [Not Recovered/Not Resolved]
  - Vitreous floaters [Unknown]

NARRATIVE: CASE EVENT DATE: 201710
